FAERS Safety Report 8510469-9 (Version None)
Quarter: 2012Q3

REPORT INFORMATION
  Report Type: 
  Country: None (occurrence: None)
  Receive Date: 20120715
  Receipt Date: 20120709
  Transmission Date: 20120928
  Serious: Yes (Other)
  Sender: FDA-Public Use
  Company Number: DE-009507513-1205DEU00009

PATIENT

DRUGS (5)
  1. ALLOPURINOL [Concomitant]
     Indication: GOUT
     Dosage: 150 MG, UNK
     Route: 048
  2. MK-0954 [Concomitant]
     Indication: HYPERTENSION
     Route: 048
  3. RAMIPRIL [Concomitant]
     Indication: HYPERTENSION
     Dosage: 5 MG, UNK
     Route: 048
  4. ZOCOR [Suspect]
     Indication: LIPID METABOLISM DISORDER
     Dosage: 5 MG, UNK
     Route: 048
     Dates: end: 20111020
  5. METOPROLOL TARTRATE [Concomitant]
     Indication: HYPERTENSION
     Dosage: 95MG, QD
     Route: 048

REACTIONS (1)
  - DRUG-INDUCED LIVER INJURY [None]
